FAERS Safety Report 17437983 (Version 1)
Quarter: 2020Q1

REPORT INFORMATION
  Report Type: Other
  Country: NL (occurrence: NL)
  Receive Date: 20200220
  Receipt Date: 20200220
  Transmission Date: 20200409
  Serious: Yes (Life-Threatening)
  Sender: FDA-Public Use
  Company Number: NL-CELLTRION INC.-2020NL019547

PATIENT

DRUGS (12)
  1. PREDNISON [Concomitant]
     Active Substance: PREDNISONE
     Dosage: TABLET, 5 MG (MILLIGRAM)
  2. HUMIRA [Suspect]
     Active Substance: ADALIMUMAB
     Indication: RHEUMATOID ARTHRITIS
     Dosage: 100 MG/ML (MILLIGRAM PER MILLILITER), 40MG
     Dates: start: 201501
  3. METHOTREXAAT [METHOTREXATE] [Concomitant]
     Active Substance: METHOTREXATE
     Dosage: UNK
  4. REMSIMA [Suspect]
     Active Substance: INFLIXIMAB
     Indication: RHEUMATOID ARTHRITIS
     Dosage: 200 MG EVERY 4 WEEKS
     Dates: start: 2016
  5. PLAQUENIL [Concomitant]
     Active Substance: HYDROXYCHLOROQUINE SULFATE
  6. TOCILIZUMAB. [Suspect]
     Active Substance: TOCILIZUMAB
     Indication: RHEUMATOID ARTHRITIS
     Dosage: 180 MG/ML (MILLIGRAM PER MILLILITER), 162MG
     Dates: start: 2017
  7. TOFACITINIB [Suspect]
     Active Substance: TOFACITINIB
     Indication: RHEUMATOID ARTHRITIS
     Dosage: TABLET, 5 MG (MILLIGRAM), EVERY 12 HOURS
     Dates: start: 2017
  8. IMURAN [Concomitant]
     Active Substance: AZATHIOPRINE
  9. ABATACEPT [Suspect]
     Active Substance: ABATACEPT
     Indication: RHEUMATOID ARTHRITIS
     Dosage: 125 MG/ML (MILLIGRAM PER MILLILITER), 125MG
     Dates: start: 2015
  10. ARAVA [Concomitant]
     Active Substance: LEFLUNOMIDE
     Dosage: UNK
  11. RITUXIMAB (UNKNOWN) [Suspect]
     Active Substance: RITUXIMAB
     Indication: RHEUMATOID ARTHRITIS
     Dosage: 10 MG/ML (MILLIGRAM PER MILLILITER), 1000 MG EVERY 6 MONTHS
     Dates: start: 2018
  12. ENBREL [Suspect]
     Active Substance: ETANERCEPT
     Indication: RHEUMATOID ARTHRITIS
     Dosage: 50 MG/ML (MILLIGRAM PER MILLILITER), 50MG
     Dates: start: 201507

REACTIONS (2)
  - Neuroendocrine carcinoma metastatic [Not Recovered/Not Resolved]
  - Overdose [Unknown]

NARRATIVE: CASE EVENT DATE: 20191101
